FAERS Safety Report 11250345 (Version 1)
Quarter: 2015Q3

REPORT INFORMATION
  Report Type: Spontaneous
  Country: US (occurrence: US)
  Receive Date: 20150708
  Receipt Date: 20150708
  Transmission Date: 20151125
  Serious: No
  Sender: FDA-Public Use
  Company Number: US-ELI_LILLY_AND_COMPANY-US201008008069

PATIENT
  Age: 14 Year
  Sex: Male

DRUGS (1)
  1. SYMBYAX [Suspect]
     Active Substance: FLUOXETINE HYDROCHLORIDE\OLANZAPINE
     Indication: DEPRESSION
     Dates: start: 201008

REACTIONS (5)
  - Epistaxis [Unknown]
  - Oropharyngeal pain [Unknown]
  - Ear infection [Unknown]
  - Haemoptysis [Unknown]
  - Glossodynia [Unknown]

NARRATIVE: CASE EVENT DATE: 201008
